FAERS Safety Report 4706453-3 (Version None)
Quarter: 2005Q3

REPORT INFORMATION
  Report Type: 
  Country: None (occurrence: None)
  Receive Date: 20050705
  Receipt Date: 20050628
  Transmission Date: 20060218
  Serious: Yes (Hospitalization)
  Sender: FDA-Public Use
  Company Number: US-GLAXOSMITHKLINE-A0564533A

PATIENT
  Age: 48 Year
  Sex: Female

DRUGS (2)
  1. LAMICTAL [Suspect]
     Route: 048
  2. SEROQUEL [Concomitant]
     Route: 065

REACTIONS (4)
  - DROOLING [None]
  - LOSS OF CONSCIOUSNESS [None]
  - SCHIZOAFFECTIVE DISORDER [None]
  - SOMNOLENCE [None]
